FAERS Safety Report 7520184-6 (Version None)
Quarter: 2011Q2

REPORT INFORMATION
  Report Type: 
  Country: None (occurrence: None)
  Receive Date: 20110602
  Receipt Date: 20110119
  Transmission Date: 20111010
  Serious: No
  Sender: FDA-Public Use
  Company Number: US-BAYER-2011-033375

PATIENT
  Age: 88 Year
  Sex: Female
  Weight: 54.422 kg

DRUGS (4)
  1. BAYER ASPIRIN SUGAR FREE LOW DOSE ENTERIC [Concomitant]
  2. THYROID THERAPY [Concomitant]
  3. CARDIOVASCULAR SYSTEM DRUGS [Concomitant]
  4. ALEVE (CAPLET) [Suspect]
     Indication: BACK PAIN
     Dosage: 2 DF, ONCE, BOTTLE COUNT 50S
     Route: 048
     Dates: start: 20110119

REACTIONS (1)
  - BACK PAIN [None]
